FAERS Safety Report 7864866-5 (Version None)
Quarter: 2011Q4

REPORT INFORMATION
  Report Type: 
  Country: None (occurrence: None)
  Receive Date: 20111028
  Receipt Date: 20100908
  Transmission Date: 20120403
  Serious: No
  Sender: FDA-Public Use
  Company Number: US-GLAXOSMITHKLINE-A0880299A

PATIENT
  Age: 59 Year
  Sex: Male

DRUGS (3)
  1. AFRIN [Concomitant]
  2. OXYCONTIN [Concomitant]
  3. ADVAIR DISKUS 100/50 [Suspect]
     Route: 055
     Dates: start: 20100801

REACTIONS (1)
  - EPISTAXIS [None]
